FAERS Safety Report 9272061 (Version 1)
Quarter: 2013Q2

REPORT INFORMATION
  Report Type: Report from Study
  Country: CA (occurrence: CA)
  Receive Date: 20130506
  Receipt Date: 20130506
  Transmission Date: 20140414
  Serious: Yes (Other)
  Sender: FDA-Public Use
  Company Number: CA-JNJFOC-20130500171

PATIENT
  Age: 77 Year
  Sex: Female
  Weight: 60 kg

DRUGS (8)
  1. REMICADE [Suspect]
     Indication: RHEUMATOID ARTHRITIS
     Route: 042
  2. METHOTREXATE [Concomitant]
     Route: 065
  3. CARBOCAL D [Concomitant]
     Route: 065
  4. NOVO-TRIAMZIDE [Concomitant]
     Route: 065
  5. EURO FOLIC [Concomitant]
     Route: 065
  6. PANTOPRAZOLE [Concomitant]
     Route: 065
  7. CRESTOR [Concomitant]
     Route: 065
  8. ACETYL SALICYCLIC ACID [Concomitant]
     Route: 065

REACTIONS (1)
  - Pain in extremity [Not Recovered/Not Resolved]
